FAERS Safety Report 19201711 (Version 1)
Quarter: 2021Q2

REPORT INFORMATION
  Report Type: Report from Study
  Country: US (occurrence: US)
  Receive Date: 20210430
  Receipt Date: 20210430
  Transmission Date: 20210717
  Serious: Yes (Hospitalization, Other)
  Sender: FDA-Public Use
  Company Number: US-AUROBINDO-AUR-APL-2021-017261

PATIENT
  Age: 77 Year
  Sex: Male
  Weight: 79.9 kg

DRUGS (2)
  1. BELINOSTAT [Suspect]
     Active Substance: BELINOSTAT
     Indication: ACUTE MYELOID LEUKAEMIA
     Dosage: 8160 MG (TOTAL DOSE)
     Route: 042
     Dates: start: 20201207, end: 20201214
  2. PEVONEDISTAT [Suspect]
     Active Substance: PEVONEDISTAT
     Indication: ACUTE MYELOID LEUKAEMIA
     Dosage: 225 MG (TOTAL DOSE)
     Route: 042
     Dates: start: 20201207, end: 20201214

REACTIONS (1)
  - Embolism [Recovered/Resolved]

NARRATIVE: CASE EVENT DATE: 20201228
